FAERS Safety Report 22209040 (Version 1)
Quarter: 2023Q2

REPORT INFORMATION
  Report Type: Other
  Country: US (occurrence: US)
  Receive Date: 20230413
  Receipt Date: 20230413
  Transmission Date: 20230722
  Serious: No
  Sender: FDA-Public Use
  Company Number: US-TRAVERE-2022TVT00580

PATIENT
  Age: 6 Year
  Sex: Male

DRUGS (4)
  1. CHOLIC ACID [Suspect]
     Active Substance: CHOLIC ACID
     Indication: Bile acid synthesis disorder
     Route: 048
     Dates: start: 20220108
  2. Multivitamin Childrens [Concomitant]
  3. Melatonin Childrens [Concomitant]
  4. MIRALAX [Concomitant]
     Active Substance: POLYETHYLENE GLYCOL 3350

REACTIONS (2)
  - Skin irritation [Unknown]
  - Rash [Unknown]

NARRATIVE: CASE EVENT DATE: 20221201
